FAERS Safety Report 7042748-9 (Version None)
Quarter: 2010Q4

REPORT INFORMATION
  Report Type: 
  Country: None (occurrence: None)
  Receive Date: 20101013
  Receipt Date: 20091123
  Transmission Date: 20110411
  Serious: No
  Sender: FDA-Public Use
  Company Number: US-ASTRAZENECA-2009SE28230

PATIENT
  Age: 69 Year
  Sex: Male
  Weight: 59.9 kg

DRUGS (4)
  1. SYMBICORT [Suspect]
     Indication: CHRONIC OBSTRUCTIVE PULMONARY DISEASE
     Dosage: 320 UG
     Route: 055
     Dates: start: 20091102
  2. OXYGEN [Concomitant]
     Indication: CHRONIC OBSTRUCTIVE PULMONARY DISEASE
  3. COMBIVENT [Concomitant]
     Indication: CHRONIC OBSTRUCTIVE PULMONARY DISEASE
     Dosage: 2-3 TIMES A DAY
  4. ALBUTEROL [Concomitant]
     Indication: CHRONIC OBSTRUCTIVE PULMONARY DISEASE

REACTIONS (2)
  - DRUG EFFECT DECREASED [None]
  - DYSPNOEA [None]
